FAERS Safety Report 19918412 (Version 3)
Quarter: 2021Q4

REPORT INFORMATION
  Report Type: Spontaneous
  Country: BR (occurrence: BR)
  Receive Date: 20211005
  Receipt Date: 20211224
  Transmission Date: 20220303
  Serious: Yes (Other)
  Sender: FDA-Public Use
  Company Number: NVSC2021BR200742

PATIENT
  Age: 70 Year
  Sex: Female
  Weight: 56 kg

DRUGS (4)
  1. ZOLPIDEM TARTRATE [Suspect]
     Active Substance: ZOLPIDEM TARTRATE
     Indication: Sleep disorder
     Dosage: UNK
     Route: 065
  2. ZOLPIDEM TARTRATE [Suspect]
     Active Substance: ZOLPIDEM TARTRATE
     Dosage: ONE TABLET CUT IN THE HALF (5 MG), QD (STRAT DATE: 6 MONTHS AGO))
     Route: 048
  3. PURAN [Concomitant]
     Active Substance: LEVOTHYROXINE SODIUM
     Indication: Thyroid disorder
     Dosage: 75 MG, QD (START DATE: 12 YEARS AGO)
     Route: 048
  4. OMEPRAZOLE [Concomitant]
     Active Substance: OMEPRAZOLE
     Indication: Abdominal discomfort
     Dosage: 1 DF, PRN (STRAT DATE: 12 YEARS AGO)
     Route: 048

REACTIONS (11)
  - Eye pain [Recovered/Resolved]
  - Eye disorder [Recovered/Resolved]
  - Malaise [Recovered/Resolved]
  - Cerebral disorder [Recovered/Resolved]
  - Exophthalmos [Recovered/Resolved]
  - Visual impairment [Recovering/Resolving]
  - Insomnia [Not Recovered/Not Resolved]
  - Headache [Recovered/Resolved]
  - Drug ineffective [Recovered/Resolved]
  - Feeling abnormal [Unknown]
  - Product label issue [Unknown]

NARRATIVE: CASE EVENT DATE: 20210830
